FAERS Safety Report 10807342 (Version 1)
Quarter: 2015Q1

REPORT INFORMATION
  Report Type: Report from Study
  Country: US (occurrence: US)
  Receive Date: 20150217
  Receipt Date: 20150217
  Transmission Date: 20150721
  Serious: No
  Sender: FDA-Public Use
  Company Number: US-ABBVIE-14K-163-1247077-00

PATIENT
  Age: 32 Year
  Sex: Female

DRUGS (6)
  1. HUMIRA [Suspect]
     Active Substance: ADALIMUMAB
     Indication: COLITIS ULCERATIVE
     Dates: start: 20140315
  2. PREDNISONE. [Concomitant]
     Active Substance: PREDNISONE
     Indication: COLITIS
     Dosage: WEANING OFF
  3. VITAMIN D [Concomitant]
     Active Substance: CHOLECALCIFEROL
     Indication: VITAMIN D DECREASED
  4. 6-MP [Concomitant]
     Active Substance: MERCAPTOPURINE
     Indication: COLITIS
  5. PROBIOTICS [Concomitant]
     Active Substance: PROBIOTICS NOS
     Indication: PRODUCT USED FOR UNKNOWN INDICATION
     Dosage: DOUBLE STRENGTH PROBIOTIC
  6. ASACOL [Concomitant]
     Active Substance: MESALAMINE
     Indication: COLITIS

REACTIONS (4)
  - Injection site bruising [Not Recovered/Not Resolved]
  - Injection site urticaria [Recovered/Resolved]
  - Injection site urticaria [Not Recovered/Not Resolved]
  - Injection site bruising [Recovering/Resolving]

NARRATIVE: CASE EVENT DATE: 20140524
